FAERS Safety Report 23827465 (Version 1)
Quarter: 2024Q2

REPORT INFORMATION
  Report Type: Spontaneous
  Country: US (occurrence: US)
  Receive Date: 20240507
  Receipt Date: 20240507
  Transmission Date: 20240715
  Serious: Yes (Hospitalization, Other)
  Sender: FDA-Public Use
  Company Number: US-BRISTOL-MYERS SQUIBB COMPANY-2024-070570

PATIENT
  Age: 44 Year
  Sex: Male

DRUGS (1)
  1. OPDIVO [Suspect]
     Active Substance: NIVOLUMAB
     Indication: Renal cancer
     Dosage: DOSE : 480 MG;     FREQ : Q4 WEEKS
     Route: 042
     Dates: start: 20231212

REACTIONS (1)
  - Hemiparesis [Unknown]

NARRATIVE: CASE EVENT DATE: 20240424
